FAERS Safety Report 8223845-9 (Version None)
Quarter: 2012Q1

REPORT INFORMATION
  Report Type: 
  Country: None (occurrence: None)
  Receive Date: 20120321
  Receipt Date: 20120312
  Transmission Date: 20120608
  Serious: Yes (Other)
  Sender: FDA-Public Use
  Company Number: CA-JNJFOC-20120306200

PATIENT
  Sex: Male
  Weight: 113 kg

DRUGS (4)
  1. REMICADE [Suspect]
     Indication: CROHN'S DISEASE
     Dosage: 45TH INFUSION
     Route: 042
     Dates: start: 20120312
  2. TYLENOL W/ CODEINE NO. 3 [Concomitant]
     Route: 065
  3. IBUPROFEN (ADVIL) [Concomitant]
     Route: 065
  4. REMICADE [Suspect]
     Route: 042
     Dates: start: 20041109

REACTIONS (1)
  - INTESTINAL STENOSIS [None]
